FAERS Safety Report 7063500-4 (Version None)
Quarter: 2010Q4

REPORT INFORMATION
  Report Type: 
  Country: None (occurrence: None)
  Receive Date: 20101026
  Receipt Date: 20100325
  Transmission Date: 20110411
  Serious: No
  Sender: FDA-Public Use
  Company Number: US-ABBOTT-10P-163-0634851-00

PATIENT
  Age: 45 Year
  Sex: Female
  Weight: 102.15 kg

DRUGS (4)
  1. LUPRON DEPOT [Suspect]
     Indication: ENDOMETRIOSIS
     Dates: start: 20091201
  2. LUPRON DEPOT [Suspect]
  3. BENACAR [Concomitant]
     Indication: HYPERTENSION
  4. VERAPAMIL [Concomitant]
     Indication: HYPERTENSION

REACTIONS (5)
  - ACNE [None]
  - BREAST ENLARGEMENT [None]
  - DYSPNOEA [None]
  - PAIN IN EXTREMITY [None]
  - WEIGHT INCREASED [None]
